FAERS Safety Report 24992159 (Version 2)
Quarter: 2025Q2

REPORT INFORMATION
  Report Type: Report from Study
  Country: US (occurrence: US)
  Receive Date: 20250220
  Receipt Date: 20250512
  Transmission Date: 20250716
  Serious: No
  Sender: SUNOVION
  Company Number: US-SUMITOMO PHARMA SWITZERLAND GMBH-2025SPA001161

PATIENT

DRUGS (2)
  1. ORGOVYX [Suspect]
     Active Substance: RELUGOLIX
     Indication: Prostate cancer
  2. ORGOVYX [Suspect]
     Active Substance: RELUGOLIX
     Dosage: 120 MG, QD
     Route: 048
     Dates: start: 20241118

REACTIONS (7)
  - Somnolence [Unknown]
  - Constipation [Recovered/Resolved]
  - Arthritis [Unknown]
  - Fatigue [Unknown]
  - Asthenia [Unknown]
  - Pain in extremity [Unknown]
  - Hypertension [Unknown]
